FAERS Safety Report 23034607 (Version 2)
Quarter: 2023Q4

REPORT INFORMATION
  Report Type: Spontaneous
  Country: JP (occurrence: JP)
  Receive Date: 20231005
  Receipt Date: 20231027
  Transmission Date: 20240110
  Serious: Yes (Hospitalization)
  Sender: FDA-Public Use
  Company Number: JP-002147023-NVSJ2023JP013979

PATIENT
  Age: 92 Year
  Sex: Male

DRUGS (3)
  1. AMLODIPINE BESYLATE [Suspect]
     Active Substance: AMLODIPINE BESYLATE
     Indication: Hypertension
     Dosage: UNK
     Route: 048
     Dates: end: 20230913
  2. ENTRESTO [Suspect]
     Active Substance: SACUBITRIL\VALSARTAN
     Indication: Hypertension
     Dosage: UNK
     Route: 048
     Dates: end: 20230913
  3. ENTRESTO [Suspect]
     Active Substance: SACUBITRIL\VALSARTAN
     Dosage: UNK
     Route: 048

REACTIONS (5)
  - Renal impairment [Recovered/Resolved]
  - Dysphagia [Recovered/Resolved]
  - Urinary tract infection [Recovered/Resolved]
  - Pyrexia [Recovered/Resolved]
  - Feeding disorder [Unknown]

NARRATIVE: CASE EVENT DATE: 20230908
